FAERS Safety Report 13182916 (Version 2)
Quarter: 2017Q1

REPORT INFORMATION
  Report Type: Report from Study
  Country: None (occurrence: BR)
  Receive Date: 20170203
  Receipt Date: 20170302
  Transmission Date: 20170428
  Serious: Yes (Hospitalization, Other)
  Sender: FDA-Public Use
  Company Number: BR-ABBVIE-17K-020-1848486-00

PATIENT
  Age: 46 Year
  Sex: Male
  Weight: 48 kg

DRUGS (5)
  1. METHOTREXATE. [Concomitant]
     Active Substance: METHOTREXATE
     Indication: ANKYLOSING SPONDYLITIS
     Route: 048
     Dates: start: 2016
  2. HUMIRA [Suspect]
     Active Substance: ADALIMUMAB
     Indication: ANKYLOSING SPONDYLITIS
     Route: 058
     Dates: start: 20160901, end: 20170105
  3. HUMIRA [Suspect]
     Active Substance: ADALIMUMAB
     Route: 058
  4. DOXYCYCLINE. [Suspect]
     Active Substance: DOXYCYCLINE
     Indication: ARTHRITIS BACTERIAL
     Route: 048
     Dates: start: 201605
  5. IMMUNE GLOBULIN NOS [Concomitant]
     Active Substance: IMMUNE GLOBULIN NOS
     Indication: IMMUNODEFICIENCY
     Route: 048

REACTIONS (13)
  - Combined immunodeficiency [Unknown]
  - Blood potassium abnormal [Unknown]
  - Arthritis bacterial [Not Recovered/Not Resolved]
  - Weight decreased [Recovered/Resolved]
  - Ankylosing spondylitis [Unknown]
  - Insomnia [Unknown]
  - Arthralgia [Unknown]
  - Joint swelling [Recovering/Resolving]
  - Surgery [Recovered/Resolved]
  - Ligament sprain [Unknown]
  - Ligament sprain [Recovering/Resolving]
  - Decreased appetite [Recovered/Resolved]
  - Post-traumatic pain [Recovering/Resolving]

NARRATIVE: CASE EVENT DATE: 201611
